FAERS Safety Report 6707434 (Version 3)
Quarter: 2013Q2

REPORT INFORMATION
  Report Type: Spontaneous
  Country: US (occurrence: US)
  Receive Date: 20080723
  Receipt Date: 20130425
  Transmission Date: 20140414
  Serious: Yes (Life-Threatening, Other)
  Sender: FDA-Public Use
  Company Number: US-MERCK-0807USA02979

PATIENT
  Age: 31 Year
  Sex: Female

DRUGS (9)
  1. SINGULAIR [Suspect]
     Route: 048
  2. PROVENTIL [Suspect]
     Route: 055
  3. THERAPY UNSPECIFIED [Concomitant]
     Indication: ASTHMA
  4. EPINEPHRINE [Suspect]
     Indication: RESPIRATORY DISTRESS
     Dosage: 1:1000 (0.3 CC)
     Route: 058
  5. IPRATROPIUM BROMIDE [Suspect]
     Route: 055
  6. IPRATROPIUM BROMIDE [Suspect]
     Dosage: 4 DF, Q4H
     Route: 055
  7. IPRATROPIUM BROMIDE [Suspect]
     Dosage: UNK
     Route: 055
  8. METHYLPREDNISOLONE [Suspect]
     Dosage: 16 MG, UNK
     Route: 042
  9. METHYLPREDNISOLONE [Suspect]
     Dosage: 16 MG, UNK
     Route: 042

REACTIONS (8)
  - Status asthmaticus [Recovered/Resolved]
  - Caesarean section [Unknown]
  - Premature baby [Unknown]
  - Respiratory failure [Unknown]
  - Exposure during pregnancy [Unknown]
  - Respiratory distress [Unknown]
  - Hypercapnia [Recovered/Resolved]
  - Asthma [Unknown]
